FAERS Safety Report 21858066 (Version 1)
Quarter: 2023Q1

REPORT INFORMATION
  Report Type: Spontaneous
  Country: CH (occurrence: CH)
  Receive Date: 20230113
  Receipt Date: 20230113
  Transmission Date: 20230417
  Serious: Yes (Other)
  Sender: FDA-Public Use
  Company Number: CH-MACLEODS PHARMACEUTICALS US LTD-MAC2022039163

PATIENT

DRUGS (1)
  1. CLOBETASOL [Suspect]
     Active Substance: CLOBETASOL
     Indication: Psoriasis
     Dosage: UNK (APPLIED ON THE WHOLE SKIN 3 TIMES PER WEEK)
     Route: 061

REACTIONS (2)
  - Hemianopia heteronymous [Recovered/Resolved]
  - Glaucoma [Recovered/Resolved]
